FAERS Safety Report 25208276 (Version 1)
Quarter: 2025Q2

REPORT INFORMATION
  Report Type: Spontaneous
  Country: AE (occurrence: AE)
  Receive Date: 20250417
  Receipt Date: 20250417
  Transmission Date: 20250716
  Serious: Yes (Other)
  Sender: AMGEN
  Company Number: AE-AMGEN-ARESP2025071739

PATIENT
  Age: 19 Year
  Sex: Male

DRUGS (1)
  1. ADALIMUMAB [Suspect]
     Active Substance: ADALIMUMAB
     Indication: Hidradenitis
     Route: 065

REACTIONS (6)
  - Corneal neovascularisation [Unknown]
  - Therapeutic product effect incomplete [Unknown]
  - Keratitis [Unknown]
  - Quality of life decreased [Unknown]
  - Corneal infiltrates [Unknown]
  - Hidradenitis [Unknown]
